FAERS Safety Report 8153606-0 (Version None)
Quarter: 2012Q1

REPORT INFORMATION
  Report Type: 
  Country: None (occurrence: None)
  Receive Date: 20120221
  Receipt Date: 20120215
  Transmission Date: 20120608
  Serious: Yes (Hospitalization, Other)
  Sender: FDA-Public Use
  Company Number: BR-ABBOTT-12P-020-0905215-00

PATIENT
  Sex: Female

DRUGS (2)
  1. HUMIRA [Suspect]
     Dates: start: 20110501
  2. HUMIRA [Suspect]
     Indication: RHEUMATOID ARTHRITIS
     Dates: start: 20090101, end: 20110401

REACTIONS (8)
  - ABDOMINAL DISCOMFORT [None]
  - HEADACHE [None]
  - CHEST PAIN [None]
  - CORONARY ARTERY OCCLUSION [None]
  - MALAISE [None]
  - DIZZINESS [None]
  - ANGINA PECTORIS [None]
  - PARAESTHESIA [None]
